FAERS Safety Report 6792655-1 (Version None)
Quarter: 2010Q2

REPORT INFORMATION
  Report Type: 
  Country: None (occurrence: None)
  Receive Date: 20100624
  Receipt Date: 20080826
  Transmission Date: 20101027
  Serious: No
  Sender: FDA-Public Use
  Company Number: US-PFIZER INC-2008071336

PATIENT
  Age: 15 Year
  Sex: Female
  Weight: 54.5 kg

DRUGS (7)
  1. GEODON [Suspect]
     Indication: DEPRESSION
     Dates: start: 20080817
  2. GEODON [Suspect]
     Indication: SUICIDAL IDEATION
  3. GEODON [Suspect]
     Indication: AGITATION
  4. HALDOL [Suspect]
     Indication: DEPRESSION
     Dates: start: 20080812, end: 20080822
  5. HALDOL [Suspect]
     Indication: SUICIDAL IDEATION
  6. HALDOL [Suspect]
     Indication: AGITATION
  7. LEXAPRO [Concomitant]

REACTIONS (6)
  - OCULAR VASCULAR DISORDER [None]
  - SEDATION [None]
  - TREMOR [None]
  - VISION BLURRED [None]
  - VISUAL ACUITY REDUCED [None]
  - WEIGHT INCREASED [None]
